FAERS Safety Report 11291804 (Version 1)
Quarter: 2015Q3

REPORT INFORMATION
  Report Type: Spontaneous
  Country: US (occurrence: None)
  Receive Date: 20150721
  Receipt Date: 20150721
  Transmission Date: 20151125
  Serious: Yes (Hospitalization)
  Sender: FDA-Public Use
  Company Number: None

PATIENT
  Age: 65 Year
  Sex: Female
  Weight: 49.9 kg

DRUGS (4)
  1. TERBINAFINE HYDOCHLORIDE [Suspect]
     Active Substance: TERBINAFINE HYDROCHLORIDE
     Indication: ONYCHOMYCOSIS
     Route: 048
     Dates: start: 20150507, end: 20150614
  2. SYNTHROID [Concomitant]
     Active Substance: LEVOTHYROXINE SODIUM
  3. MULTIPLE VITAMIN [Concomitant]
     Active Substance: VITAMINS
  4. MAGNESIUM MALATE [Concomitant]

REACTIONS (7)
  - Pyrexia [None]
  - Activities of daily living impaired [None]
  - White blood cell count decreased [None]
  - Somnolence [None]
  - Drug hypersensitivity [None]
  - Fatigue [None]
  - Abdominal pain upper [None]

NARRATIVE: CASE EVENT DATE: 20150616
